FAERS Safety Report 6003450-5 (Version None)
Quarter: 2008Q4

REPORT INFORMATION
  Report Type: 
  Country: None (occurrence: None)
  Receive Date: 20081216
  Receipt Date: 20081208
  Transmission Date: 20090506
  Serious: Yes (Other)
  Sender: FDA-Public Use
  Company Number: GB-BRISTOL-MYERS SQUIBB COMPANY-14437172

PATIENT
  Sex: Female

DRUGS (1)
  1. ANATENSOL [Suspect]

REACTIONS (2)
  - DRUG DEPENDENCE [None]
  - WITHDRAWAL SYNDROME [None]
